FAERS Safety Report 4638510-4 (Version None)
Quarter: 2005Q2

REPORT INFORMATION
  Report Type: 
  Country: None (occurrence: None)
  Receive Date: 20050418
  Receipt Date: 20050408
  Transmission Date: 20051028
  Serious: Yes (Other)
  Sender: FDA-Public Use
  Company Number: 2005055454

PATIENT
  Age: 79 Year
  Sex: Female

DRUGS (5)
  1. BEXTRA [Suspect]
     Indication: ILL-DEFINED DISORDER
     Dosage: (20 MG), ORAL
     Route: 048
     Dates: start: 20050114, end: 20050219
  2. TRIMIPRAMINE MALEATE [Concomitant]
  3. LANSOPRAZOLE [Concomitant]
  4. DIOVAN HCT [Concomitant]
  5. GINKO BILOBA (GINKGO BILOBA) [Concomitant]

REACTIONS (1)
  - EXANTHEM [None]
